FAERS Safety Report 12517191 (Version 3)
Quarter: 2016Q3

REPORT INFORMATION
  Report Type: Spontaneous
  Country: US (occurrence: US)
  Receive Date: 20160630
  Receipt Date: 20160726
  Transmission Date: 20161109
  Serious: No
  Sender: FDA-Public Use
  Company Number: US-PFIZER INC-2016320598

PATIENT
  Age: 64 Year
  Sex: Female
  Weight: 61.23 kg

DRUGS (6)
  1. LYRICA [Suspect]
     Active Substance: PREGABALIN
     Dosage: 75 MG, UNK
     Route: 048
  2. HYDROXYCHLOROQUINE [Suspect]
     Active Substance: HYDROXYCHLOROQUINE
     Indication: HYPERSENSITIVITY
     Dosage: 25MG, TABLET, ONE IN THE MORNING AND 2 AT NIGHT
     Route: 048
     Dates: start: 2015
  3. PENNSAID [Concomitant]
     Active Substance: DICLOFENAC SODIUM
     Dosage: 2%
  4. LYRICA [Suspect]
     Active Substance: PREGABALIN
     Indication: PARAESTHESIA
     Dosage: 50 MG, 2X/DAY
     Route: 048
  5. HYDROXYCHLOROQUINE [Suspect]
     Active Substance: HYDROXYCHLOROQUINE
     Indication: PRURITUS
  6. LYRICA [Suspect]
     Active Substance: PREGABALIN
     Indication: HYPOAESTHESIA
     Dosage: 50 MG AT BEDTIME
     Route: 048
     Dates: start: 20160522

REACTIONS (2)
  - Weight increased [Unknown]
  - Vision blurred [Not Recovered/Not Resolved]

NARRATIVE: CASE EVENT DATE: 201606
